FAERS Safety Report 12804037 (Version 1)
Quarter: 2016Q4

REPORT INFORMATION
  Report Type: Other
  Country: DE (occurrence: DE)
  Receive Date: 20161003
  Receipt Date: 20161003
  Transmission Date: 20170207
  Serious: Yes (Other)
  Sender: FDA-Public Use
  Company Number: DE-ACTELION-A-CH2016-142915

PATIENT
  Age: 28 Year
  Sex: Female

DRUGS (6)
  1. TORASEMIDE [Concomitant]
     Active Substance: TORSEMIDE
     Dosage: 15 MG, TID
  2. SPIRONOLACTONE. [Concomitant]
     Active Substance: SPIRONOLACTONE
     Dosage: 25 MG, OD
  3. BOSENTAN. [Suspect]
     Active Substance: BOSENTAN
     Indication: PERIPARTUM CARDIOMYOPATHY
     Dosage: 32 MG, BID
     Route: 048
  4. METOPROLOL. [Concomitant]
     Active Substance: METOPROLOL
     Dosage: 47.5 UNK, BID
  5. ENALAPRIL [Concomitant]
     Active Substance: ENALAPRIL
     Dosage: 10 MG, BID
  6. VENTAVIS [Concomitant]
     Active Substance: ILOPROST
     Route: 055

REACTIONS (4)
  - Ventricular hypertrophy [Unknown]
  - Ventricular assist device insertion [Recovered/Resolved]
  - Gamma-glutamyltransferase increased [Unknown]
  - Tricuspid valve incompetence [Unknown]
